FAERS Safety Report 19296014 (Version 3)
Quarter: 2021Q3

REPORT INFORMATION
  Report Type: Spontaneous
  Country: US (occurrence: US)
  Receive Date: 20210524
  Receipt Date: 20210903
  Transmission Date: 20211014
  Serious: Yes (Other)
  Sender: FDA-Public Use
  Company Number: US-BAYER-2021-141986

PATIENT
  Age: 47 Year
  Sex: Female

DRUGS (2)
  1. MIRENA [Suspect]
     Active Substance: LEVONORGESTREL
     Indication: HEAVY MENSTRUAL BLEEDING
  2. MIRENA [Suspect]
     Active Substance: LEVONORGESTREL
     Indication: CONTRACEPTION
     Dosage: 20  ?G PER DAY ,CONTINUOUSLY
     Route: 015
     Dates: start: 20210226, end: 20210521

REACTIONS (25)
  - Genital haemorrhage [Recovering/Resolving]
  - Medical device pain [Recovering/Resolving]
  - Dysmenorrhoea [None]
  - Vaginal haemorrhage [Recovering/Resolving]
  - Night sweats [Recovering/Resolving]
  - Alopecia [Recovering/Resolving]
  - Vaginal discharge [Recovering/Resolving]
  - Chills [Recovering/Resolving]
  - Dizziness [Recovering/Resolving]
  - Diarrhoea [Recovering/Resolving]
  - Device dislocation [Recovered/Resolved]
  - Procedural pain [Recovering/Resolving]
  - Device issue [None]
  - Hypoaesthesia [Recovering/Resolving]
  - Presyncope [Recovering/Resolving]
  - Medical device monitoring error [None]
  - Amenorrhoea [Recovering/Resolving]
  - Abdominal pain upper [Recovering/Resolving]
  - Headache [Recovering/Resolving]
  - Body temperature fluctuation [Recovering/Resolving]
  - Contraindicated device used [None]
  - Device difficult to use [None]
  - Acne [Recovered/Resolved]
  - Medical device discomfort [Recovering/Resolving]
  - Abdominal pain lower [Recovering/Resolving]

NARRATIVE: CASE EVENT DATE: 2021
